FAERS Safety Report 8598898-9 (Version None)
Quarter: 2012Q3

REPORT INFORMATION
  Report Type: 
  Country: None (occurrence: None)
  Receive Date: 20120816
  Receipt Date: 20120807
  Transmission Date: 20120928
  Serious: Yes (Hospitalization)
  Sender: FDA-Public Use
  Company Number: US-ASTRAZENECA-2010SE53988

PATIENT
  Age: 37 Year
  Sex: Male
  Weight: 90.7 kg

DRUGS (12)
  1. ALLOPURINOL [Concomitant]
  2. SIMVASTATIN [Concomitant]
  3. OTHER DRUGS FOR BIPOLAR [Concomitant]
     Indication: BIPOLAR DISORDER
  4. KLONOPIN [Concomitant]
  5. LOVAZA [Concomitant]
  6. SEROQUEL [Suspect]
     Indication: BIPOLAR I DISORDER
     Route: 048
     Dates: start: 20080101
  7. SEROQUEL [Suspect]
     Route: 048
     Dates: start: 20100101
  8. INSULIN [Concomitant]
  9. ACTOS [Concomitant]
  10. SEROQUEL [Suspect]
     Route: 048
     Dates: start: 20101001
  11. ZYPREXA [Concomitant]
  12. MEDICINE FOR GOUT [Concomitant]
     Indication: GOUT

REACTIONS (5)
  - BIPOLAR DISORDER [None]
  - GLUCOSE TOLERANCE IMPAIRED [None]
  - DRUG INEFFECTIVE [None]
  - DIABETES MELLITUS [None]
  - HYPERTENSION [None]
